FAERS Safety Report 7536200-1 (Version None)
Quarter: 2011Q2

REPORT INFORMATION
  Report Type: 
  Country: None (occurrence: None)
  Receive Date: 20110608
  Receipt Date: 20110608
  Transmission Date: 20111010
  Serious: Yes (Hospitalization, Other)
  Sender: FDA-Public Use
  Company Number: None

PATIENT
  Age: 78 Year
  Sex: Female

DRUGS (2)
  1. HEPARIN [Suspect]
     Indication: ATRIAL FIBRILLATION
     Dosage: TITRATED BY PHARMACIST CONTINUOUS IV DRIP
     Route: 041
     Dates: start: 20110408, end: 20110412
  2. HEPARIN [Suspect]
     Indication: EMBOLIC STROKE
     Dosage: TITRATED BY PHARMACIST CONTINUOUS IV DRIP
     Route: 041
     Dates: start: 20110408, end: 20110412

REACTIONS (4)
  - ACTIVATED PARTIAL THROMBOPLASTIN TIME [None]
  - HAEMOGLOBIN DECREASED [None]
  - HAEMATEMESIS [None]
  - INTERNATIONAL NORMALISED RATIO DECREASED [None]
